FAERS Safety Report 23065880 (Version 1)
Quarter: 2023Q4

REPORT INFORMATION
  Report Type: Spontaneous
  Country: US (occurrence: US)
  Receive Date: 20231014
  Receipt Date: 20231014
  Transmission Date: 20240110
  Serious: Yes (Hospitalization)
  Sender: FDA-Public Use
  Company Number: US-TORRENT-00012876

PATIENT
  Age: 14 Year
  Sex: Male

DRUGS (1)
  1. TRAZODONE [Suspect]
     Active Substance: TRAZODONE HYDROCHLORIDE
     Indication: Sleep disorder
     Dosage: 75 MG DOSE REQUIRED THEM TO DISSOLVE 1.5 TABLET
     Route: 065

REACTIONS (3)
  - Dyspnoea [Recovered/Resolved]
  - Increased viscosity of bronchial secretion [Recovered/Resolved]
  - Respiratory symptom [Recovered/Resolved]
